FAERS Safety Report 5755297-2 (Version None)
Quarter: 2008Q2

REPORT INFORMATION
  Report Type: 
  Country: None (occurrence: None)
  Receive Date: 20080602
  Receipt Date: 20080522
  Transmission Date: 20081010
  Serious: Yes (Hospitalization, Other)
  Sender: FDA-Public Use
  Company Number: US-AMGEN-QUU272842

PATIENT
  Sex: Female
  Weight: 89.9 kg

DRUGS (4)
  1. ENBREL [Suspect]
     Indication: ANKYLOSING SPONDYLITIS
     Route: 058
     Dates: start: 20030128, end: 20051101
  2. METHOTREXATE [Suspect]
     Route: 048
     Dates: start: 20030101, end: 20051101
  3. FOLIC ACID [Concomitant]
     Route: 048
  4. IBUPROFEN [Concomitant]

REACTIONS (13)
  - ACUTE PULMONARY HISTOPLASMOSIS [None]
  - AUTOIMMUNE HEPATITIS [None]
  - BLOOD POTASSIUM DECREASED [None]
  - CHOLECYSTITIS [None]
  - DYSPNOEA [None]
  - HEPATOMEGALY [None]
  - HISTOPLASMOSIS DISSEMINATED [None]
  - PANCYTOPENIA [None]
  - PLEURITIC PAIN [None]
  - PNEUMONIA [None]
  - SPLENOMEGALY [None]
  - TACHYCARDIA [None]
  - VISION BLURRED [None]
